FAERS Safety Report 5628245-3 (Version None)
Quarter: 2008Q1

REPORT INFORMATION
  Report Type: 
  Country: None (occurrence: None)
  Receive Date: 20080215
  Receipt Date: 20080205
  Transmission Date: 20080703
  Serious: Yes (Death, Other)
  Sender: FDA-Public Use
  Company Number: FR-PFIZER INC-2008006152

PATIENT
  Sex: Female
  Weight: 61 kg

DRUGS (8)
  1. TAHOR [Suspect]
     Route: 048
  2. ACETAMINOPHEN W/ PROPOXYPHENE HCL [Interacting]
  3. METFORMIN HCL [Concomitant]
     Route: 048
  4. ACETYLSALICYLATE LYSINE [Concomitant]
     Route: 048
  5. DILTIAZEM [Concomitant]
     Route: 048
  6. CAFFEINE/DEXTROPROPOXYPHENE/PARACETAMOL [Concomitant]
     Route: 048
     Dates: start: 20020218, end: 20020228
  7. THIOCOLCHICOSIDE [Concomitant]
     Route: 048
     Dates: start: 20020218, end: 20020228
  8. TETRAZEPAM [Concomitant]
     Route: 048
     Dates: start: 20020218, end: 20020228

REACTIONS (3)
  - CORONARY ARTERY DISEASE [None]
  - DRUG INTERACTION [None]
  - HEPATITIS [None]
